FAERS Safety Report 6615932-3 (Version None)
Quarter: 2010Q1

REPORT INFORMATION
  Report Type: 
  Country: None (occurrence: None)
  Receive Date: 20100305
  Receipt Date: 20100223
  Transmission Date: 20100710
  Serious: Yes (Other)
  Sender: FDA-Public Use
  Company Number: US-JNJFOC-20100210379

PATIENT
  Age: 27 Year
  Sex: Female
  Weight: 49.9 kg

DRUGS (3)
  1. TYLENOL (CAPLET) [Suspect]
     Indication: TOOTHACHE
     Dosage: 2 TABLETS EVERY 3 HOURS, AS NEEDED
     Route: 048
  2. TYLENOL (CAPLET) [Suspect]
     Indication: HEADACHE
     Dosage: 2 TABLETS EVERY 3 HOURS, AS NEEDED
     Route: 048
  3. VITAMIN TAB [Concomitant]
     Indication: PREGNANCY

REACTIONS (7)
  - ABDOMINAL PAIN UPPER [None]
  - ABORTION SPONTANEOUS [None]
  - DIARRHOEA [None]
  - DRUG EXPOSURE DURING PREGNANCY [None]
  - NAUSEA [None]
  - PRODUCT QUALITY ISSUE [None]
  - SINUSITIS [None]
